FAERS Safety Report 7981495-3 (Version None)
Quarter: 2011Q4

REPORT INFORMATION
  Report Type: 
  Country: None (occurrence: None)
  Receive Date: 20111215
  Receipt Date: 20111209
  Transmission Date: 20120403
  Serious: Yes (Other)
  Sender: FDA-Public Use
  Company Number: JP-PFIZER INC-2011301366

PATIENT
  Sex: Male
  Weight: 27.5 kg

DRUGS (1)
  1. ZITHROMAX [Suspect]
     Dosage: UNK
     Route: 048
     Dates: start: 20111208

REACTIONS (2)
  - HALLUCINATION [None]
  - ABNORMAL BEHAVIOUR [None]
